FAERS Safety Report 14356717 (Version 1)
Quarter: 2018Q1

REPORT INFORMATION
  Report Type: Spontaneous
  Country: US (occurrence: US)
  Receive Date: 20180105
  Receipt Date: 20180105
  Transmission Date: 20180509
  Serious: Yes (Other)
  Sender: FDA-Public Use
  Company Number: US-PFIZER INC-2018002685

PATIENT
  Age: 50 Year
  Sex: Female

DRUGS (8)
  1. ERYTHROMYCIN STEARATE [Suspect]
     Active Substance: ERYTHROMYCIN STEARATE
     Indication: PNEUMONIA
     Dosage: 4.25 G, FOR 5 DAYS
     Route: 048
  2. ERYTHROMYCIN STEARATE [Suspect]
     Active Substance: ERYTHROMYCIN STEARATE
     Indication: JAUNDICE CHOLESTATIC
  3. ERYTHROMYCIN. [Suspect]
     Active Substance: ERYTHROMYCIN
     Indication: PNEUMONIA
     Dosage: 500 MG, UNK (WITHIN EIGHT HOURS)
     Route: 042
  4. ERYTHROMYCIN STEARATE [Suspect]
     Active Substance: ERYTHROMYCIN STEARATE
     Indication: PNEUMONIA LEGIONELLA
  5. ERYTHROMYCIN. [Suspect]
     Active Substance: ERYTHROMYCIN
     Indication: PNEUMONIA LEGIONELLA
  6. ERYTHROMYCIN STEARATE [Suspect]
     Active Substance: ERYTHROMYCIN STEARATE
     Indication: PLEURAL EFFUSION
     Dosage: 400 MG, 4X/DAY
     Route: 048
  7. ERYTHROMYCIN. [Suspect]
     Active Substance: ERYTHROMYCIN
     Indication: JAUNDICE CHOLESTATIC
  8. ERYTHROMYCIN. [Suspect]
     Active Substance: ERYTHROMYCIN
     Indication: PLEURAL EFFUSION
     Dosage: 10.5 G, UNK (DURING EIGHT DAYS)
     Route: 042

REACTIONS (1)
  - Ototoxicity [Recovering/Resolving]
